FAERS Safety Report 7836202-1 (Version None)
Quarter: 2011Q4

REPORT INFORMATION
  Report Type: 
  Country: None (occurrence: None)
  Receive Date: 20111024
  Receipt Date: 20101103
  Transmission Date: 20120403
  Serious: No
  Sender: FDA-Public Use
  Company Number: US-ABBOTT-10P-163-0683729-00

PATIENT
  Sex: Female
  Weight: 119.86 kg

DRUGS (3)
  1. LUPRON [Suspect]
     Indication: ENDOMETRIOSIS
     Dates: start: 20091230, end: 20100129
  2. PROVERA [Concomitant]
     Indication: PRODUCT USED FOR UNKNOWN INDICATION
     Dates: start: 20101102
  3. FLONASE [Concomitant]
     Indication: PRODUCT USED FOR UNKNOWN INDICATION

REACTIONS (3)
  - METRORRHAGIA [None]
  - PAIN [None]
  - ABDOMINAL PAIN [None]
